FAERS Safety Report 9011639 (Version 2)
Quarter: 2013Q2

REPORT INFORMATION
  Report Type: Spontaneous
  Country: PL (occurrence: PL)
  Receive Date: 20130108
  Receipt Date: 20130402
  Transmission Date: 20140414
  Serious: Yes (Hospitalization, Other)
  Sender: FDA-Public Use
  Company Number: PL-ROCHE-1173876

PATIENT
  Sex: Male
  Weight: 74 kg

DRUGS (2)
  1. COPEGUS [Suspect]
     Indication: HEPATITIS C
     Route: 048
     Dates: start: 20121201
  2. PEGASYS [Suspect]
     Indication: HEPATITIS C
     Route: 065
     Dates: start: 20121215

REACTIONS (25)
  - General physical health deterioration [Unknown]
  - Amnesia [Unknown]
  - Anal fissure [Unknown]
  - Anal haemorrhage [Unknown]
  - Myalgia [Not Recovered/Not Resolved]
  - Bone pain [Not Recovered/Not Resolved]
  - Headache [Unknown]
  - Cough [Unknown]
  - Platelet count decreased [Unknown]
  - Diabetes mellitus [Unknown]
  - Constipation [Unknown]
  - Pain in extremity [Unknown]
  - Erythema [Unknown]
  - Balance disorder [Unknown]
  - Reiter^s syndrome [Unknown]
  - Asthenia [Unknown]
  - Faeces discoloured [Unknown]
  - Dry skin [Unknown]
  - Fatigue [Unknown]
  - Drug ineffective [Unknown]
  - Skin exfoliation [Unknown]
  - Blister [Unknown]
  - Rash [Unknown]
  - Anaemia [Unknown]
  - Vertigo [Unknown]
